FAERS Safety Report 15865604 (Version 2)
Quarter: 2019Q1

REPORT INFORMATION
  Report Type: Report from Study
  Country: None (occurrence: US)
  Receive Date: 20190125
  Receipt Date: 20190305
  Transmission Date: 20190417
  Serious: Yes (Other)
  Sender: FDA-Public Use
  Company Number: US-ABBVIE-19K-163-2637490-00

PATIENT
  Age: 64 Year
  Sex: Male
  Weight: 101.7 kg

DRUGS (1)
  1. HUMIRA [Suspect]
     Active Substance: ADALIMUMAB
     Indication: RHEUMATOID ARTHRITIS
     Route: 058
     Dates: end: 201901

REACTIONS (2)
  - Fall [Unknown]
  - Tendon rupture [Recovered/Resolved]
